FAERS Safety Report 6015975-7 (Version None)
Quarter: 2008Q4

REPORT INFORMATION
  Report Type: 
  Country: None (occurrence: None)
  Receive Date: 20081216
  Receipt Date: 20080430
  Transmission Date: 20090506
  Serious: Yes (Other)
  Sender: FDA-Public Use
  Company Number: US-WYE-H03897608

PATIENT

DRUGS (1)
  1. EFFEXOR XR [Suspect]
     Dosage: 37.5 MG FREQUENCY UNSPECIFIED

REACTIONS (1)
  - LOSS OF CONSCIOUSNESS [None]
